FAERS Safety Report 20524625 (Version 1)
Quarter: 2022Q1

REPORT INFORMATION
  Report Type: Spontaneous
  Country: US (occurrence: US)
  Receive Date: 20220228
  Receipt Date: 20220228
  Transmission Date: 20220424
  Serious: No
  Sender: FDA-Public Use
  Company Number: US-SA-SAC20220223000716

PATIENT
  Age: 21 Year
  Sex: Female

DRUGS (1)
  1. DUPIXENT [Suspect]
     Active Substance: DUPILUMAB
     Indication: Dermatitis atopic
     Dosage: 300 MG (1 SYRINGE), QOW
     Route: 058
     Dates: start: 20200910

REACTIONS (3)
  - COVID-19 [Unknown]
  - Dermatitis atopic [Unknown]
  - Product dose omission issue [Unknown]
